FAERS Safety Report 23623984 (Version 3)
Quarter: 2024Q1

REPORT INFORMATION
  Report Type: Spontaneous
  Country: AU (occurrence: AU)
  Receive Date: 20240312
  Receipt Date: 20240320
  Transmission Date: 20240410
  Serious: Yes (Hospitalization, Other)
  Sender: FDA-Public Use
  Company Number: AU-PFIZER INC-PV202400029907

PATIENT
  Sex: Female

DRUGS (1)
  1. XYNTHA [Suspect]
     Active Substance: ANTIHEMOPHILIC FACTOR, HUMAN RECOMBINANT RESIDUES 743-1636 DELETED
     Indication: Haemophilia
     Dosage: UNK, AS NEEDED

REACTIONS (8)
  - Foot operation [Unknown]
  - Contusion [Unknown]
  - Swelling [Unknown]
  - Road traffic accident [Unknown]
  - Prescription drug used without a prescription [Unknown]
  - Osteoporosis [Unknown]
  - Arthritis [Unknown]
  - Peripheral swelling [Unknown]
